FAERS Safety Report 10147408 (Version 2)
Quarter: 2014Q2

REPORT INFORMATION
  Report Type: Spontaneous
  Country: JP (occurrence: JP)
  Receive Date: 20140501
  Receipt Date: 20140602
  Transmission Date: 20141212
  Serious: Yes (Hospitalization, Disabling)
  Sender: FDA-Public Use
  Company Number: JP-B.I. PHARMACEUTICALS,INC./RIDGEFIELD-2014-BI-19493NB

PATIENT
  Age: 72 Year
  Sex: Female
  Weight: 59.5 kg

DRUGS (7)
  1. PRAZAXA [Suspect]
     Indication: ATRIAL FIBRILLATION
     Dosage: 300 MG
     Route: 048
     Dates: start: 20130521, end: 20140426
  2. PRAZAXA [Suspect]
     Dosage: 300 MG
     Route: 048
     Dates: start: 20140424, end: 20140424
  3. MAINTATE [Concomitant]
     Indication: ATRIAL FIBRILLATION
     Route: 065
     Dates: start: 201307
  4. DIGOXIN [Concomitant]
     Indication: ATRIAL FIBRILLATION
     Route: 065
     Dates: start: 201307
  5. TAMBOCOR [Concomitant]
     Indication: ATRIAL FIBRILLATION
     Route: 065
     Dates: start: 201307
  6. BEPRICOR [Concomitant]
     Indication: ATRIAL FIBRILLATION
     Route: 065
  7. ASPIRIN [Concomitant]
     Route: 065

REACTIONS (2)
  - Cerebral infarction [Recovered/Resolved with Sequelae]
  - Drug ineffective [Unknown]
